FAERS Safety Report 24161144 (Version 1)
Quarter: 2024Q3

REPORT INFORMATION
  Report Type: Spontaneous
  Country: US (occurrence: US)
  Receive Date: 20240801
  Receipt Date: 20240801
  Transmission Date: 20241017
  Serious: Yes (Other)
  Sender: LUPIN
  Company Number: US-LUPIN PHARMACEUTICALS INC.-2024-07316

PATIENT
  Age: 24 Year
  Sex: Female

DRUGS (11)
  1. MEMANTINE [Suspect]
     Active Substance: MEMANTINE
     Indication: Complex regional pain syndrome
     Dosage: 20 MG, QD (5MG UP TITRATION EVERY WEEK TO 20MG DAILY)
     Route: 065
  2. PREGABALIN [Suspect]
     Active Substance: PREGABALIN
     Indication: Complex regional pain syndrome
     Dosage: 200 MILLIGRAM, TID (3 TIMES A DAY)
     Route: 048
  3. METHOCARBAMOL [Suspect]
     Active Substance: METHOCARBAMOL
     Indication: Complex regional pain syndrome
     Dosage: 500 MG, TID (3 TIMES A DAY)
     Route: 065
  4. MAGNESIUM OXIDE [Suspect]
     Active Substance: MAGNESIUM OXIDE
     Indication: Complex regional pain syndrome
     Dosage: 400 MG, QD
     Route: 065
  5. ZICONOTIDE [Suspect]
     Active Substance: ZICONOTIDE
     Indication: Complex regional pain syndrome
     Dosage: 2.5 MICROGRAM, QD
     Route: 065
  6. ZICONOTIDE [Suspect]
     Active Substance: ZICONOTIDE
     Dosage: 1.51 ?G/D, QD
     Route: 065
  7. ZICONOTIDE [Suspect]
     Active Substance: ZICONOTIDE
     Dosage: 0.5 ?G/D
     Route: 065
  8. BACLOFEN [Suspect]
     Active Substance: BACLOFEN
     Indication: Complex regional pain syndrome
     Dosage: 25 ?G/D, QD
     Route: 065
  9. BACLOFEN [Suspect]
     Active Substance: BACLOFEN
     Dosage: 75 ?G/D, QD
     Route: 065
  10. BACLOFEN [Suspect]
     Active Substance: BACLOFEN
     Dosage: 10 MILLIGRAM, TID
     Route: 065
  11. BACLOFEN [Suspect]
     Active Substance: BACLOFEN
     Dosage: 20 MILLIGRAM, TID
     Route: 065

REACTIONS (3)
  - Drug ineffective for unapproved indication [Unknown]
  - Off label use [Unknown]
  - Exposure during pregnancy [Unknown]
